FAERS Safety Report 23682764 (Version 1)
Quarter: 2024Q1

REPORT INFORMATION
  Report Type: Spontaneous
  Country: US (occurrence: US)
  Receive Date: 20240328
  Receipt Date: 20240328
  Transmission Date: 20240409
  Serious: No
  Sender: FDA-Public Use
  Company Number: US-BAUSCH-BL-2024-004816

PATIENT
  Sex: Male

DRUGS (2)
  1. ALTRENO [Suspect]
     Active Substance: TRETINOIN
     Indication: Product used for unknown indication
     Route: 065
     Dates: end: 2024
  2. ALTRENO [Suspect]
     Active Substance: TRETINOIN

REACTIONS (4)
  - Eye irritation [Not Recovered/Not Resolved]
  - Dry eye [Not Recovered/Not Resolved]
  - Skin burning sensation [Not Recovered/Not Resolved]
  - Dry skin [Not Recovered/Not Resolved]
